FAERS Safety Report 8830786 (Version 2)
Quarter: 2012Q4

REPORT INFORMATION
  Report Type: 
  Country: US (occurrence: US)
  Receive Date: 20121009
  Receipt Date: 20121108
  Transmission Date: 20130627
  Serious: Yes (Other)
  Sender: FDA-Public Use
  Company Number: US-AMGEN-USASP2012063904

PATIENT
  Age: 73 Year
  Sex: Female
  Weight: 126.5 kg

DRUGS (26)
  1. ENBREL [Suspect]
     Indication: RHEUMATOID ARTHRITIS
     Dosage: .98 ml, qwk
     Route: 058
     Dates: start: 20120305, end: 20120316
  2. POTASSIUM CHLORIDE [Concomitant]
     Dosage: 2 UNK, bid
     Dates: start: 20121015
  3. POTASSIUM CHLORIDE [Concomitant]
     Dosage: 2 UNK, bid
     Dates: start: 20120328
  4. LASIX                              /00032601/ [Concomitant]
     Dosage: 20 mg, bid
     Dates: start: 20121015
  5. CITALOPRAM [Concomitant]
     Dosage: 40 mg, qd
     Dates: start: 20120302
  6. METHOTREXATE SODIUM [Concomitant]
     Dosage: 2.5 mg, q10wk
     Dates: start: 20120224
  7. LIDOCAINE [Concomitant]
     Dosage: 5 %,(700 mg/patch) UNK
     Dates: start: 20110826
  8. METHOCARBAMOL [Concomitant]
     Dosage: 750 mg, bid
     Dates: start: 20110811
  9. NEURONTIN [Concomitant]
     Dosage: 300 mg, tid
     Dates: start: 20110808
  10. VITAMIN D /00107901/ [Concomitant]
     Dosage: 2000 unit, qd
     Dates: start: 20110126
  11. FISH OIL [Concomitant]
     Dosage: 1000 mg, qd
     Dates: start: 20110126
  12. LOSARTAN + HIDROCLOROTIAZIDA [Concomitant]
     Dosage: 100 mg-25 mg qd
     Dates: start: 20110126
  13. BUSPIRONE [Concomitant]
     Dosage: 5 mg, tid
     Dates: start: 20110126
  14. FOLIC ACID [Concomitant]
     Dosage: 1 mg, qd
     Dates: start: 20101206
  15. ACTOPLUS MET [Concomitant]
     Dosage: 15mg-850 mg
     Dates: start: 20100918
  16. MIRALAX                            /00754501/ [Concomitant]
     Dosage: 17gm, qd (one unit daily)
     Route: 048
     Dates: start: 20101124
  17. BABY ASPIRIN [Concomitant]
     Dosage: 81 mg, bid
     Dates: start: 20101124
  18. MULTIVITAMIN                       /00097801/ [Concomitant]
     Dosage: UNK UNK, qd
     Dates: start: 20101124
  19. LEVOTHYROXINE [Concomitant]
     Dosage: 88 mcg, qd
     Dates: start: 20100519
  20. COZAAR [Concomitant]
     Dosage: 100 mg, qd
     Dates: start: 20100519
  21. SIMVASTATIN [Concomitant]
     Dosage: 40 mg, qd
     Dates: start: 20100519
  22. METHYLPHENIDATE [Concomitant]
     Dosage: 20 mg, bid
     Dates: start: 20100519
  23. BUPROPION [Concomitant]
     Dosage: 150 mg, bid
     Dates: start: 20101124
  24. SALSALATE [Concomitant]
     Dosage: 500 mg, 2 three times a day
     Dates: start: 20101124
  25. AMLODIPINE BENAZEPRIL [Concomitant]
     Dosage: 10 mg-20 mg qd
     Dates: start: 20100519
  26. METFORMIN [Concomitant]
     Dosage: 500 mg, bid
     Dates: start: 20100519

REACTIONS (12)
  - Hip fracture [Not Recovered/Not Resolved]
  - Fall [Not Recovered/Not Resolved]
  - Arthralgia [Not Recovered/Not Resolved]
  - Joint swelling [Not Recovered/Not Resolved]
  - Skin reaction [Recovered/Resolved]
  - Pyrexia [Recovered/Resolved]
  - Nausea [Recovered/Resolved]
  - Nervousness [Recovered/Resolved]
  - Pain in extremity [Recovered/Resolved]
  - Headache [Recovered/Resolved]
  - Palpitations [Recovered/Resolved]
  - Injection site bruising [Recovered/Resolved]
